FAERS Safety Report 11804320 (Version 1)
Quarter: 2015Q4

REPORT INFORMATION
  Report Type: Spontaneous
  Country: GB (occurrence: GB)
  Receive Date: 20151204
  Receipt Date: 20151204
  Transmission Date: 20160305
  Serious: Yes (Other)
  Sender: FDA-Public Use
  Company Number: GB-TEVA-612927ACC

PATIENT
  Age: 77 Year
  Sex: Female

DRUGS (4)
  1. CONOTRANE [Concomitant]
  2. VOLTAROL [Concomitant]
     Active Substance: DICLOFENAC SODIUM
  3. TRIMETHOPRIM. [Suspect]
     Active Substance: TRIMETHOPRIM
     Indication: URINARY TRACT INFECTION
  4. ELTROXIN [Concomitant]
     Active Substance: LEVOTHYROXINE

REACTIONS (3)
  - Thermal burn [Not Recovered/Not Resolved]
  - Rash generalised [Not Recovered/Not Resolved]
  - Urticaria [Not Recovered/Not Resolved]
